FAERS Safety Report 9151950 (Version 2)
Quarter: 2014Q1

REPORT INFORMATION
  Report Type: Spontaneous
  Country: US (occurrence: US)
  Receive Date: 20130308
  Receipt Date: 20140311
  Transmission Date: 20141002
  Serious: No
  Sender: FDA-Public Use
  Company Number: US-GLAXOSMITHKLINE-A1003647A

PATIENT
  Age: 53 Year
  Sex: Female

DRUGS (2)
  1. NICORETTE FRUIT CHILL OTC 2MG [Suspect]
     Indication: EX-TOBACCO USER
     Dates: start: 20121129, end: 20121129
  2. NICORETTE CINNAMON SURGE OTC 4MG [Suspect]
     Indication: EX-TOBACCO USER

REACTIONS (13)
  - Drug administration error [Unknown]
  - Product quality issue [Unknown]
  - Oral mucosal blistering [Recovered/Resolved]
  - Gastric disorder [Not Recovered/Not Resolved]
  - Malaise [Not Recovered/Not Resolved]
  - Nausea [Not Recovered/Not Resolved]
  - Malaise [Not Recovered/Not Resolved]
  - Abdominal distension [Not Recovered/Not Resolved]
  - Abdominal distension [Not Recovered/Not Resolved]
  - Abdominal pain upper [Not Recovered/Not Resolved]
  - Vomiting [Recovered/Resolved]
  - Poor quality sleep [Not Recovered/Not Resolved]
  - Insomnia [Not Recovered/Not Resolved]
